FAERS Safety Report 11516454 (Version 1)
Quarter: 2015Q3

REPORT INFORMATION
  Report Type: Spontaneous
  Country: US (occurrence: US)
  Receive Date: 20150917
  Receipt Date: 20150917
  Transmission Date: 20151125
  Serious: No
  Sender: FDA-Public Use
  Company Number: US-PFIZER INC-2015307117

PATIENT
  Age: 47 Year
  Sex: Male
  Weight: 125 kg

DRUGS (1)
  1. GENOTROPIN MQ [Suspect]
     Active Substance: SOMATROPIN
     Indication: DWARFISM
     Dosage: 0.2 MG, 1X/DAY
     Route: 058
     Dates: start: 20140925

REACTIONS (6)
  - Insomnia [Unknown]
  - Weight increased [Not Recovered/Not Resolved]
  - Lethargy [Not Recovered/Not Resolved]
  - Fatigue [Not Recovered/Not Resolved]
  - Irritability [Not Recovered/Not Resolved]
  - Bone pain [Not Recovered/Not Resolved]
